FAERS Safety Report 10733072 (Version 1)
Quarter: 2015Q1

REPORT INFORMATION
  Report Type: Report from Study
  Country: RO (occurrence: None)
  Receive Date: 20150120
  Receipt Date: 20150120
  Transmission Date: 20150721
  Serious: Yes (Other)
  Sender: FDA-Public Use
  Company Number: 2015RO000418

PATIENT
  Sex: Male
  Weight: 84 kg

DRUGS (3)
  1. ELIGARD [Suspect]
     Active Substance: LEUPROLIDE ACETATE
     Indication: PROSTATE CANCER
     Dosage: 45MG EVERY 6 MONTHS
     Dates: start: 20130913, end: 20140903
  2. ZOLADEX [Concomitant]
     Active Substance: GOSERELIN ACETATE
  3. CALUMID (BICALUTAMIDE) [Concomitant]

REACTIONS (2)
  - Prostate cancer [None]
  - Drug ineffective [None]
